FAERS Safety Report 8611740-2 (Version None)
Quarter: 2012Q3

REPORT INFORMATION
  Report Type: 
  Country: None (occurrence: None)
  Receive Date: 20120822
  Receipt Date: 20120814
  Transmission Date: 20120928
  Serious: Yes (Hospitalization)
  Sender: FDA-Public Use
  Company Number: US-FRI-1000037548

PATIENT
  Age: 69 Year
  Sex: Male

DRUGS (7)
  1. VIIBRYD [Suspect]
     Indication: DEPRESSION
     Dosage: 10 MG
     Route: 048
     Dates: start: 20120413, end: 20120401
  2. VIIBRYD [Suspect]
     Dosage: 20 MG
     Route: 048
     Dates: start: 20120401, end: 20120101
  3. TYLENOL W/ CODEINE NO. 3 [Suspect]
     Indication: HEADACHE
  4. VIIBRYD [Suspect]
     Dosage: 40 MG
     Route: 048
     Dates: start: 20120101, end: 20120612
  5. MORPHINE [Suspect]
  6. TRAMADOL HCL [Concomitant]
  7. FLUTICASONE PROPIONATE/SALMETEROL [Concomitant]
     Dosage: 115 MCG 1 PUFF TWO TIMES DAILY

REACTIONS (11)
  - AGITATION [None]
  - HALLUCINATION [None]
  - DELUSION [None]
  - HAEMOGLOBIN DECREASED [None]
  - AGGRESSION [None]
  - DELIRIUM [None]
  - GASTRITIS [None]
  - AMNESIA [None]
  - CRYING [None]
  - ABNORMAL BEHAVIOUR [None]
  - OESOPHAGITIS [None]
